FAERS Safety Report 25665477 (Version 1)
Quarter: 2025Q3

REPORT INFORMATION
  Report Type: Spontaneous
  Country: GB (occurrence: GB)
  Receive Date: 20250811
  Receipt Date: 20250811
  Transmission Date: 20251020
  Serious: Yes (Hospitalization, Other)
  Sender: MYLAN
  Company Number: GB-MYLANLABS-2025M1054856

PATIENT
  Sex: Male
  Weight: 119 kg

DRUGS (20)
  1. CLOZARIL [Suspect]
     Active Substance: CLOZAPINE
     Indication: Schizophrenia
  2. CLOZARIL [Suspect]
     Active Substance: CLOZAPINE
     Dosage: 12.5 MILLIGRAM, BID (BD)
     Dates: start: 20250605, end: 20250606
  3. CLOZARIL [Suspect]
     Active Substance: CLOZAPINE
     Dosage: 25 MILLIGRAM, BID (BD)
     Dates: start: 20250607, end: 20250608
  4. CLOZARIL [Suspect]
     Active Substance: CLOZAPINE
     Dosage: 75 MILLIGRAM, QD (OD)
     Dates: start: 20250609, end: 20250610
  5. CLOZARIL [Suspect]
     Active Substance: CLOZAPINE
     Dosage: 50 MILLIGRAM, BID (BD)
     Dates: start: 20250611, end: 20250611
  6. CLOZARIL [Suspect]
     Active Substance: CLOZAPINE
     Dosage: 125 MILLIGRAM, QD (OD)
     Dates: start: 20250612, end: 20250612
  7. CLOZARIL [Suspect]
     Active Substance: CLOZAPINE
     Dosage: 75 MILLIGRAM, BID (BD)
     Dates: start: 20250613, end: 20250613
  8. CLOZARIL [Suspect]
     Active Substance: CLOZAPINE
     Dosage: 175 MILLIGRAM, QD (OD)
     Dates: start: 20250614, end: 20250614
  9. CLOZARIL [Suspect]
     Active Substance: CLOZAPINE
     Dosage: 100 MILLIGRAM, BID (BD)
     Dates: start: 20250615, end: 20250615
  10. CLOZARIL [Suspect]
     Active Substance: CLOZAPINE
     Dosage: 225 MILLIGRAM, QD (OD)
     Dates: start: 20250616, end: 20250616
  11. CLOZARIL [Suspect]
     Active Substance: CLOZAPINE
     Dosage: 125 MILLIGRAM, BID (BD)
     Dates: start: 20250617, end: 20250617
  12. CLOZARIL [Suspect]
     Active Substance: CLOZAPINE
     Dosage: 275 MILLIGRAM, QD (OD)
     Dates: start: 20250618, end: 20250618
  13. CLOZARIL [Suspect]
     Active Substance: CLOZAPINE
     Dosage: 150 MILLIGRAM, BID (BD)
     Dates: start: 20250619, end: 20250621
  14. CLOZARIL [Suspect]
     Active Substance: CLOZAPINE
     Dosage: 250 MILLIGRAM, QD (OD)
     Dates: start: 20250622, end: 20250622
  15. CLOZARIL [Suspect]
     Active Substance: CLOZAPINE
     Dosage: 150 MILLIGRAM, QD (OD)
     Dates: start: 20250623, end: 20250623
  16. CLONAZEPAM [Concomitant]
     Active Substance: CLONAZEPAM
     Indication: Agitation
     Dosage: 500 MICROGRAM, PM (ON)
     Dates: start: 20250607, end: 20250612
  17. GAVISCON [Concomitant]
     Active Substance: ALUMINUM HYDROXIDE\MAGNESIUM CARBONATE
     Indication: Dyspepsia
     Dosage: 10 MILLIGRAM, QD (OD)
     Dates: start: 20250613, end: 20250615
  18. OLANZAPINE [Concomitant]
     Active Substance: OLANZAPINE
     Indication: Schizophrenia
     Dosage: 10 MILLIGRAM, QD (OD)
     Dates: start: 20250603, end: 20250612
  19. OLANZAPINE [Concomitant]
     Active Substance: OLANZAPINE
     Dosage: 5 MILLIGRAM, QD (OD)
     Dates: start: 20250613, end: 20250616
  20. SODIUM BICARBONATE [Concomitant]
     Active Substance: SODIUM BICARBONATE
     Indication: Ear pain
     Dosage: 3 GTT DROPS, TID (TDS)
     Dates: start: 20250612, end: 20250617

REACTIONS (2)
  - Mental impairment [Recovering/Resolving]
  - Myocarditis [Recovering/Resolving]

NARRATIVE: CASE EVENT DATE: 20250623
